FAERS Safety Report 8097327-1 (Version None)
Quarter: 2012Q1

REPORT INFORMATION
  Report Type: 
  Country: None (occurrence: None)
  Receive Date: 20120128
  Receipt Date: 20110624
  Transmission Date: 20120608
  Serious: No
  Sender: FDA-Public Use
  Company Number: US-ABBOTT-11P-163-0835447-00

PATIENT
  Sex: Female
  Weight: 107.6 kg

DRUGS (9)
  1. METHOTREXATE [Concomitant]
     Indication: RHEUMATOID ARTHRITIS
     Route: 048
  2. JANUVIA [Concomitant]
     Indication: DIABETES MELLITUS
     Dosage: 100 MG DAILY AT LUNCH
     Route: 048
  3. TRAMADOL HCL [Concomitant]
     Indication: ARTHRALGIA
  4. GLIPIZIDE [Concomitant]
     Indication: DIABETES MELLITUS
     Route: 048
  5. PREDNISONE TAB [Concomitant]
     Indication: PRODUCT USED FOR UNKNOWN INDICATION
     Route: 048
  6. METFORMIN HCL [Concomitant]
     Indication: DIABETES MELLITUS
     Route: 048
  7. PRAVASTATIN SODIUM [Concomitant]
     Indication: BLOOD CHOLESTEROL
  8. FOLIC ACID [Concomitant]
     Indication: PRODUCT USED FOR UNKNOWN INDICATION
     Route: 048
  9. HUMIRA [Suspect]
     Indication: RHEUMATOID ARTHRITIS
     Route: 058
     Dates: start: 20110301

REACTIONS (7)
  - ABDOMINAL PAIN UPPER [None]
  - DIARRHOEA [None]
  - FLATULENCE [None]
  - PAIN IN EXTREMITY [None]
  - ERUCTATION [None]
  - DYSSTASIA [None]
  - MUSCLE SPASMS [None]
